FAERS Safety Report 4289548-0 (Version None)
Quarter: 2004Q1

REPORT INFORMATION
  Report Type: 
  Country: None (occurrence: None)
  Receive Date: 20040120
  Receipt Date: 20020903
  Transmission Date: 20041129
  Serious: Yes (Other)
  Sender: FDA-Public Use
  Company Number: 6000002-2003-00331

PATIENT
  Sex: Female

DRUGS (1)
  1. RIMSO-50 [Suspect]
     Indication: CYSTITIS INTERSTITIAL
     Dosage: SECOND TREATMENT
     Dates: start: 20020829

REACTIONS (2)
  - CYSTITIS INTERSTITIAL [None]
  - MEDICATION ERROR [None]
